FAERS Safety Report 5797105-X (Version None)
Quarter: 2008Q2

REPORT INFORMATION
  Report Type: 
  Country: None (occurrence: None)
  Receive Date: 20080627
  Receipt Date: 20080616
  Transmission Date: 20081010
  Serious: Yes (Hospitalization)
  Sender: FDA-Public Use
  Company Number: 2008SI007987

PATIENT
  Age: 80 Year
  Sex: Female

DRUGS (6)
  1. BYSTOLIC [Suspect]
     Indication: BLOOD PRESSURE INCREASED
     Dosage: 5 MG;DAILY;ORAL
     Route: 048
     Dates: start: 20080420, end: 20080504
  2. ANTIBIOTICS [Suspect]
  3. AZULFIDINE EN-TABS [Concomitant]
  4. AMLODIPINE [Concomitant]
  5. SYNTHROID [Concomitant]
  6. PREDNISONE TAB [Concomitant]

REACTIONS (3)
  - ABDOMINAL PAIN [None]
  - DIARRHOEA HAEMORRHAGIC [None]
  - RECTAL HAEMORRHAGE [None]
